FAERS Safety Report 13064251 (Version 4)
Quarter: 2017Q1

REPORT INFORMATION
  Report Type: Spontaneous
  Country: AT (occurrence: AT)
  Receive Date: 20161227
  Receipt Date: 20170127
  Transmission Date: 20170428
  Serious: Yes (Death, Hospitalization)
  Sender: FDA-Public Use
  Company Number: PHHY2016AT177326

PATIENT
  Age: 65 Year
  Sex: Male
  Weight: 93.5 kg

DRUGS (1)
  1. VOTRIENT [Suspect]
     Active Substance: PAZOPANIB HYDROCHLORIDE
     Indication: RENAL CELL CARCINOMA
     Dosage: 800 MG, QD (1X800 MG, DAILY)
     Route: 048
     Dates: start: 20160915, end: 20161223

REACTIONS (4)
  - Lung abscess [Fatal]
  - Lung disorder [Fatal]
  - Malignant neoplasm progression [Unknown]
  - Pneumonia [Fatal]

NARRATIVE: CASE EVENT DATE: 20161222
